FAERS Safety Report 8941447 (Version 1)
Quarter: 2012Q4

REPORT INFORMATION
  Report Type: Report from Study
  Country: US (occurrence: US)
  Receive Date: 20121203
  Receipt Date: 20121203
  Transmission Date: 20130627
  Serious: Yes (Hospitalization)
  Sender: FDA-Public Use
  Company Number: US-ROCHE-1158449

PATIENT
  Age: 44 Year
  Sex: Female
  Weight: 99.79 kg

DRUGS (4)
  1. TRASTUZUMAB [Suspect]
     Indication: BREAST CANCER
     Dosage: dose form: 7.8527 mg/kg, last dose administerd prior to SAE was on date 01/Nov/2012.
     Route: 042
     Dates: start: 20121101
  2. CARBOPLATIN [Suspect]
     Indication: BREAST CANCER
     Dosage: form: 6AUC
     Route: 042
     Dates: start: 20121101
  3. DOCETAXEL [Suspect]
     Indication: BREAST CANCER
     Route: 065
  4. PERTUZUMAB [Suspect]
     Indication: BREAST CANCER
     Dosage: last dose administerd prior to SAE was on date 01/Nov/2012.
     Route: 042
     Dates: start: 20121101

REACTIONS (1)
  - Staphylococcal skin infection [Not Recovered/Not Resolved]
